FAERS Safety Report 4806304-2 (Version None)
Quarter: 2005Q4

REPORT INFORMATION
  Report Type: 
  Country: None (occurrence: None)
  Receive Date: 20051019
  Receipt Date: 20051006
  Transmission Date: 20060501
  Serious: Yes (Other)
  Sender: FDA-Public Use
  Company Number: 2005139573

PATIENT
  Sex: Female

DRUGS (2)
  1. ZYVOX [Suspect]
     Indication: ILL-DEFINED DISORDER
     Dosage: 1200 MG                 (600 MG, BID), INTRAVENOUS
     Route: 042
  2. PROZAC [Suspect]
     Indication: ILL-DEFINED DISORDER

REACTIONS (1)
  - MYOTONIA [None]
